FAERS Safety Report 17419962 (Version 1)
Quarter: 2020Q1

REPORT INFORMATION
  Report Type: Spontaneous
  Country: US (occurrence: US)
  Receive Date: 20200214
  Receipt Date: 20200214
  Transmission Date: 20200409
  Serious: No
  Sender: FDA-Public Use
  Company Number: US-PFIZER INC-2020064627

PATIENT
  Age: 73 Year
  Sex: Male
  Weight: 102.4 kg

DRUGS (1)
  1. XELJANZ XR [Suspect]
     Active Substance: TOFACITINIB CITRATE
     Indication: ARTHRITIS
     Dosage: 11 MG, 1X/DAY (ONCE A DAY EVERY MORNING)
     Route: 048

REACTIONS (2)
  - Sensitivity to weather change [Unknown]
  - Gait disturbance [Unknown]
